APPROVED DRUG PRODUCT: BENADRYL PRESERVATIVE FREE
Active Ingredient: DIPHENHYDRAMINE HYDROCHLORIDE
Strength: 50MG/ML **Federal Register determination that product was not discontinued or withdrawn for safety or effectiveness reasons**
Dosage Form/Route: INJECTABLE;INJECTION
Application: N009486 | Product #001
Applicant: MCNEIL CONSUMER HEALTHCARE
Approved: Approved Prior to Jan 1, 1982 | RLD: Yes | RS: No | Type: DISCN